FAERS Safety Report 7550607-8 (Version None)
Quarter: 2011Q2

REPORT INFORMATION
  Report Type: 
  Country: None (occurrence: None)
  Receive Date: 20110616
  Receipt Date: 20110607
  Transmission Date: 20111010
  Serious: Yes (Hospitalization)
  Sender: FDA-Public Use
  Company Number: US-BIOGENIDEC-2011BI019284

PATIENT
  Age: 65 Year
  Sex: Female

DRUGS (1)
  1. AVONEX [Suspect]
     Indication: MULTIPLE SCLEROSIS
     Route: 030
     Dates: start: 20010415

REACTIONS (7)
  - DELUSION [None]
  - PANCREATITIS [None]
  - VOMITING [None]
  - INCOHERENT [None]
  - BLOOD PRESSURE DECREASED [None]
  - CARDIAC ENZYMES INCREASED [None]
  - HAEMATOCHEZIA [None]
